FAERS Safety Report 4985223-5 (Version None)
Quarter: 2006Q2

REPORT INFORMATION
  Report Type: 
  Country: None (occurrence: None)
  Receive Date: 20060427
  Receipt Date: 20050413
  Transmission Date: 20061013
  Serious: Yes (Hospitalization)
  Sender: FDA-Public Use
  Company Number: NO-MERCK-0504NOR00017

PATIENT
  Age: 66 Year
  Sex: Male

DRUGS (6)
  1. VIOXX [Suspect]
     Indication: SPINAL COLUMN STENOSIS
     Route: 048
     Dates: start: 20020619, end: 20040109
  2. VIOXX [Suspect]
     Route: 048
     Dates: start: 20040301
  3. ATORVASTATIN CALCIUM [Concomitant]
     Indication: HYPERTENSION
     Route: 065
  4. PREDNISOLONE [Concomitant]
     Indication: ARTHRITIS
     Route: 065
     Dates: start: 20031101
  5. CITALOPRAM HYDROBROMIDE [Concomitant]
     Route: 065
  6. MIANSERIN HYDROCHLORIDE [Concomitant]
     Route: 065

REACTIONS (5)
  - ASTHENIA [None]
  - BRAIN DAMAGE [None]
  - CEREBRAL INFARCTION [None]
  - DYSARTHRIA [None]
  - GAIT DISTURBANCE [None]
